FAERS Safety Report 7660159-X (Version None)
Quarter: 2011Q3

REPORT INFORMATION
  Report Type: 
  Country: None (occurrence: None)
  Receive Date: 20110805
  Receipt Date: 20110801
  Transmission Date: 20111222
  Serious: Yes (Death, Other)
  Sender: FDA-Public Use
  Company Number: PHHY2011FR69509

PATIENT
  Sex: Female

DRUGS (10)
  1. DIPRIVAN [Suspect]
     Dosage: UNK UKN, UNK
     Route: 042
     Dates: end: 20110715
  2. VIMPAT [Concomitant]
     Dosage: UNK UKN, UNK
  3. OMEPRAZOLE [Concomitant]
     Dosage: UNK UKN, UNK
  4. TEGRETOL [Suspect]
     Dosage: UNK UKN, UNK
     Route: 048
     Dates: start: 20110616, end: 20110718
  5. CLONAZEPAM [Concomitant]
     Dosage: UNK UKN, UNK
  6. VALACYCLOVIR HYDROCHLORIDE [Concomitant]
     Dosage: UNK UKN, UNK
  7. KEPPRA [Concomitant]
     Dosage: UNK UKN, UNK
  8. BACTRIM [Suspect]
     Dosage: UNK UKN, UNK
     Route: 042
     Dates: end: 20110717
  9. SIROLIMUS [Concomitant]
  10. PHENOXYMETHYL PENICILLIN [Concomitant]
     Dosage: UNK UKN, UNK

REACTIONS (12)
  - C-REACTIVE PROTEIN INCREASED [None]
  - HAEMOGLOBIN DECREASED [None]
  - ASPARTATE AMINOTRANSFERASE INCREASED [None]
  - HEPATITIS [None]
  - CHOLESTASIS [None]
  - BICYTOPENIA [None]
  - GAMMA-GLUTAMYLTRANSFERASE INCREASED [None]
  - ASPARTATE AMINOTRANSFERASE DECREASED [None]
  - SEPTIC SHOCK [None]
  - HAEMODILUTION [None]
  - CYTOLYTIC HEPATITIS [None]
  - ALANINE AMINOTRANSFERASE INCREASED [None]
